FAERS Safety Report 9246774 (Version 1)
Quarter: 2013Q2

REPORT INFORMATION
  Report Type: Spontaneous
  Country: DE (occurrence: DE)
  Receive Date: 20130422
  Receipt Date: 20130422
  Transmission Date: 20140414
  Serious: Yes (Death)
  Sender: FDA-Public Use
  Company Number: DE-UCBSA-001708

PATIENT
  Age: 59 Year
  Sex: Female
  Weight: 50 kg

DRUGS (1)
  1. NEUPRO [Suspect]
     Route: 062

REACTIONS (3)
  - Death [Fatal]
  - Application site pruritus [Recovered/Resolved]
  - Application site erythema [Recovered/Resolved]
